FAERS Safety Report 5823134-3 (Version None)
Quarter: 2008Q3

REPORT INFORMATION
  Report Type: 
  Country: None (occurrence: None)
  Receive Date: 20080725
  Receipt Date: 20080714
  Transmission Date: 20090109
  Serious: Yes (Death, Hospitalization)
  Sender: FDA-Public Use
  Company Number: CM-MERCK-0306USA01843

PATIENT
  Age: 45 Year
  Sex: Male

DRUGS (1)
  1. STROMECTOL [Suspect]
     Route: 048
     Dates: start: 20030601, end: 20030601

REACTIONS (24)
  - APHASIA [None]
  - ARTHRALGIA [None]
  - ASTHENIA [None]
  - CACHEXIA [None]
  - COMA [None]
  - CONJUNCTIVAL HAEMORRHAGE [None]
  - COUGH [None]
  - DEATH [None]
  - DECUBITUS ULCER [None]
  - DEHYDRATION [None]
  - DIZZINESS [None]
  - DYSARTHRIA [None]
  - DYSPNOEA [None]
  - EATING DISORDER [None]
  - ENCEPHALOPATHY [None]
  - HEART SOUNDS ABNORMAL [None]
  - INCONTINENCE [None]
  - KUSSMAUL RESPIRATION [None]
  - OEDEMA PERIPHERAL [None]
  - PARTIAL SEIZURES [None]
  - PRURITUS [None]
  - PYREXIA [None]
  - RALES [None]
  - VERTIGO [None]
